FAERS Safety Report 22209238 (Version 1)
Quarter: 2023Q2

REPORT INFORMATION
  Report Type: Report from Study
  Country: US (occurrence: US)
  Receive Date: 20230413
  Receipt Date: 20230413
  Transmission Date: 20230722
  Serious: Yes (Hospitalization, Other)
  Sender: FDA-Public Use
  Company Number: US-ABBVIE-4722111

PATIENT
  Age: 78 Year
  Sex: Male

DRUGS (4)
  1. IMBRUVICA [Suspect]
     Active Substance: IBRUTINIB
     Indication: Chronic lymphocytic leukaemia
     Dosage: 140MG
     Route: 048
     Dates: start: 20170605, end: 201804
  2. IMBRUVICA [Suspect]
     Active Substance: IBRUTINIB
     Indication: Chronic lymphocytic leukaemia
     Dosage: 420 MG
     Route: 048
     Dates: end: 20190713
  3. IMBRUVICA [Suspect]
     Active Substance: IBRUTINIB
     Indication: Chronic lymphocytic leukaemia
     Route: 048
  4. BENADRYL [Suspect]
     Active Substance: DIPHENHYDRAMINE HYDROCHLORIDE
     Indication: Product used for unknown indication
     Route: 065

REACTIONS (15)
  - Loss of consciousness [Unknown]
  - Duodenal ulcer haemorrhage [Unknown]
  - Varicose vein [Unknown]
  - Syncope [Unknown]
  - Oedema peripheral [Unknown]
  - Calculus bladder [Unknown]
  - Hypersensitivity [Unknown]
  - Somnolence [Unknown]
  - Hypertension [Unknown]
  - Macular degeneration [Unknown]
  - Automatic bladder [Unknown]
  - Gastrointestinal pain [Unknown]
  - Peripheral swelling [Unknown]
  - Gait inability [Unknown]
  - Asthenia [Unknown]

NARRATIVE: CASE EVENT DATE: 20210601
